FAERS Safety Report 9620865 (Version 1)
Quarter: 2013Q4

REPORT INFORMATION
  Report Type: Spontaneous
  Country: US (occurrence: US)
  Receive Date: 20131015
  Receipt Date: 20131015
  Transmission Date: 20140711
  Serious: Yes (Hospitalization)
  Sender: FDA-Public Use
  Company Number: US-BAYER-2013-124124

PATIENT
  Age: 48 Year
  Sex: Female
  Weight: 61.22 kg

DRUGS (13)
  1. YASMIN [Suspect]
  2. YAZ [Suspect]
  3. ARMOUR THYROID [Concomitant]
  4. SERTRALINE HYDROCHLORIDE [Concomitant]
     Dosage: 25 MG, DAILY
  5. ZOLOFT [Concomitant]
  6. CEFTRIAXONE [Concomitant]
  7. PERCOCET [Concomitant]
  8. ZOFRAN [Concomitant]
  9. DULCOLAX [BISACODYL] [Concomitant]
  10. PROTONIX [Concomitant]
  11. AZITHROMYCIN [Concomitant]
  12. CEFTIN [Concomitant]
  13. ACIDOPHILUS [Concomitant]

REACTIONS (1)
  - Pulmonary embolism [None]
